FAERS Safety Report 4826385-X (Version None)
Quarter: 2005Q4

REPORT INFORMATION
  Report Type: 
  Country: None (occurrence: None)
  Receive Date: 20051111
  Receipt Date: 20051102
  Transmission Date: 20060501
  Serious: Yes (Death)
  Sender: FDA-Public Use
  Company Number: IT-AVENTIS-200514129EU

PATIENT
  Age: 93 Year
  Sex: Male

DRUGS (5)
  1. ENOXAPARIN SODIUM [Suspect]
     Indication: DEEP VEIN THROMBOSIS
  2. ADALAT [Concomitant]
  3. NITRGLYCERIN TRANSDERMAL SYSTEM [Concomitant]
  4. CASODEX [Concomitant]
  5. MADOPAR [Concomitant]

REACTIONS (8)
  - DIARRHOEA HAEMORRHAGIC [None]
  - ESCHERICHIA URINARY TRACT INFECTION [None]
  - HAEMATURIA [None]
  - PULMONARY EMBOLISM [None]
  - PYREXIA [None]
  - RECTAL HAEMORRHAGE [None]
  - RESPIRATORY DISORDER [None]
  - URINARY TRACT INFECTION [None]
